FAERS Safety Report 8826527 (Version 1)
Quarter: 2012Q4

REPORT INFORMATION
  Report Type: 
  Country: US (occurrence: US)
  Receive Date: 20121005
  Receipt Date: 20121005
  Transmission Date: 20130627
  Serious: Yes (Other)
  Sender: FDA-Public Use
  Company Number: US-WATSON-2012-16655

PATIENT
  Age: 61 Year
  Sex: Male

DRUGS (7)
  1. RAPAFLO (WATSON LABORATORIES) [Suspect]
     Indication: BENIGN PROSTATIC HYPERPLASIA
     Dosage: UNK
     Route: 048
     Dates: start: 201209
  2. PROSCAR [Suspect]
     Indication: BENIGN PROSTATIC HYPERPLASIA
     Dosage: UNK
     Route: 048
     Dates: start: 201209
  3. SIMVASTATIN [Concomitant]
     Indication: BLOOD CHOLESTEROL INCREASED
     Dosage: UNK
     Route: 048
  4. TRICOR                             /00090101/ [Concomitant]
     Indication: BLOOD CHOLESTEROL INCREASED
     Dosage: UNK
     Route: 048
  5. VIRIMUNE [Concomitant]
     Indication: HIV INFECTION
     Dosage: 1 tab bid
     Route: 048
  6. EPZICOM [Concomitant]
     Indication: HIV INFECTION
     Dosage: 1 tab qd
     Route: 048
  7. LEXAPRO [Concomitant]
     Indication: BIPOLAR DISORDER
     Dosage: UNK
     Route: 048

REACTIONS (2)
  - Hepatic fibrosis [Not Recovered/Not Resolved]
  - Hepatitis C [Not Recovered/Not Resolved]
